FAERS Safety Report 10019399 (Version 2)
Quarter: 2014Q2

REPORT INFORMATION
  Report Type: Report from Study
  Country: US (occurrence: US)
  Receive Date: 20140318
  Receipt Date: 20140401
  Transmission Date: 20141212
  Serious: Yes (Death, Hospitalization)
  Sender: FDA-Public Use
  Company Number: US-CELGENEUS-163-21880-14031832

PATIENT
  Age: 69 Year
  Sex: Male
  Weight: 83.99 kg

DRUGS (33)
  1. REVLIMID [Suspect]
     Indication: PLASMA CELL MYELOMA
     Route: 048
     Dates: start: 20131227
  2. REVLIMID [Suspect]
     Dosage: 15 MILLIGRAM
     Route: 048
     Dates: start: 20140303, end: 20140310
  3. ZOMETA [Concomitant]
     Indication: PRODUCT USED FOR UNKNOWN INDICATION
     Route: 065
  4. FUROSEMIDE [Concomitant]
     Indication: PRODUCT USED FOR UNKNOWN INDICATION
     Route: 065
  5. CEFTRIAXONE [Concomitant]
     Indication: PRODUCT USED FOR UNKNOWN INDICATION
     Route: 065
  6. VANCOMYCIN [Concomitant]
     Indication: PRODUCT USED FOR UNKNOWN INDICATION
     Route: 065
  7. ACETAMINOPHEN [Concomitant]
     Indication: PRODUCT USED FOR UNKNOWN INDICATION
     Dosage: 3900
     Route: 048
     Dates: start: 20140310
  8. ACETAMINOPHEN [Concomitant]
     Dosage: 3900
     Route: 054
     Dates: start: 20140311
  9. ACYCLOVIR [Concomitant]
     Indication: PRODUCT USED FOR UNKNOWN INDICATION
     Dosage: 800 MILLIGRAM
     Route: 048
     Dates: start: 20140310
  10. ALBUTEROL/IPRATROPIUM [Concomitant]
     Indication: PRODUCT USED FOR UNKNOWN INDICATION
     Route: 055
     Dates: start: 20140311
  11. ALLOPURINOL [Concomitant]
     Indication: PRODUCT USED FOR UNKNOWN INDICATION
     Dosage: 100 MILLIGRAM
     Route: 048
     Dates: start: 20140310
  12. ASPIRIN [Concomitant]
     Indication: PRODUCT USED FOR UNKNOWN INDICATION
     Dosage: 81 MILLIGRAM
     Route: 048
     Dates: start: 20140310
  13. BISACODYL [Concomitant]
     Indication: PRODUCT USED FOR UNKNOWN INDICATION
     Dosage: 10 MILLIGRAM
     Route: 054
     Dates: start: 20140310
  14. DIPHENOX-ATROP [Concomitant]
     Indication: PRODUCT USED FOR UNKNOWN INDICATION
     Dosage: 1-2 TABLET 2.5-0.25MG
     Route: 041
     Dates: start: 20140311
  15. FAMOTIDINE [Concomitant]
     Indication: PRODUCT USED FOR UNKNOWN INDICATION
     Dosage: 20 MILLIGRAM
     Route: 041
     Dates: start: 20140310
  16. GABAPENTIN [Concomitant]
     Indication: PRODUCT USED FOR UNKNOWN INDICATION
     Dosage: 3600 MILLIGRAM
     Route: 048
     Dates: start: 20140310
  17. GLYCOPYRROLATE [Concomitant]
     Indication: PRODUCT USED FOR UNKNOWN INDICATION
     Dosage: 0.2-0.4 MG
     Route: 041
     Dates: start: 20140310
  18. GLYCOPYRROLATE [Concomitant]
     Dosage: 0.2-0.4 MG
     Route: 058
     Dates: start: 20140311
  19. HYDROCODONE/ACETAMINOPHEN [Concomitant]
     Indication: PRODUCT USED FOR UNKNOWN INDICATION
     Dosage: 5/325MG
     Route: 048
     Dates: start: 20140310
  20. LORAZEPAM [Concomitant]
     Indication: PRODUCT USED FOR UNKNOWN INDICATION
     Dosage: 1MG-0.5MG
     Route: 041
     Dates: start: 20140310
  21. LORAZEPAM [Concomitant]
     Dosage: 0.5-2MG
     Route: 041
     Dates: start: 20140311
  22. LORAZEPAM [Concomitant]
     Route: 060
     Dates: start: 20140311
  23. MORPHINE SULFATE [Concomitant]
     Indication: PRODUCT USED FOR UNKNOWN INDICATION
     Dosage: 3-20MG
     Route: 060
     Dates: start: 20140311
  24. MORPHINE SULFATE [Concomitant]
     Dosage: 1-6MG
     Route: 041
     Dates: start: 20140311
  25. POLYVINYL ALCOHOL [Concomitant]
     Indication: PRODUCT USED FOR UNKNOWN INDICATION
     Route: 047
     Dates: start: 20140311
  26. PROMETHAZINE HCL [Concomitant]
     Indication: PRODUCT USED FOR UNKNOWN INDICATION
     Dosage: 12.5-25
     Route: 054
     Dates: start: 20140311
  27. PROMETHAZINE HCL [Concomitant]
     Dosage: 12.5-25
     Route: 048
     Dates: start: 20140311
  28. PROMETHAZINE HCL [Concomitant]
     Dosage: 12.5-25
     Route: 041
     Dates: start: 20140311
  29. PYRIDOXINE HCL [Concomitant]
     Indication: PRODUCT USED FOR UNKNOWN INDICATION
     Dosage: 100 MILLIGRAM
     Route: 048
     Dates: start: 20140310
  30. SCOPOLAMINE [Concomitant]
     Indication: PRODUCT USED FOR UNKNOWN INDICATION
     Dosage: .5 MILLIGRAM
     Route: 061
     Dates: start: 20140311
  31. SIMVASTATIN [Concomitant]
     Indication: PRODUCT USED FOR UNKNOWN INDICATION
     Route: 048
     Dates: start: 20140310
  32. ZOLPIDEM TARTRATE [Concomitant]
     Indication: PRODUCT USED FOR UNKNOWN INDICATION
     Dosage: 5-10MG
     Route: 048
     Dates: start: 20140310
  33. DEXTROSE [Concomitant]
     Indication: PRODUCT USED FOR UNKNOWN INDICATION

REACTIONS (2)
  - Plasma cell myeloma [Fatal]
  - Renal failure acute [Fatal]
